FAERS Safety Report 18104306 (Version 1)
Quarter: 2020Q3

REPORT INFORMATION
  Report Type: Spontaneous
  Country: IE (occurrence: IE)
  Receive Date: 20200803
  Receipt Date: 20200803
  Transmission Date: 20201103
  Serious: Yes (Other)
  Sender: FDA-Public Use
  Company Number: IE-TEVA-2020-IE-1808146

PATIENT
  Age: 52 Year
  Sex: Female

DRUGS (8)
  1. SEROQUEL [Suspect]
     Active Substance: QUETIAPINE FUMARATE
     Dates: start: 2007
  2. DOLMATIL [Suspect]
     Active Substance: SULPIRIDE
     Dates: start: 1991, end: 2007
  3. EPILIM [Suspect]
     Active Substance: VALPROATE SODIUM
  4. QUETIAPINE (G) [Suspect]
     Active Substance: QUETIAPINE
     Route: 065
  5. ABILIFY MAINTENA [Suspect]
     Active Substance: ARIPIPRAZOLE
     Dosage: MONTHLY INJECTION
     Dates: start: 20200520
  6. ARIPIPRAZOLE. [Suspect]
     Active Substance: ARIPIPRAZOLE
     Dates: start: 2007, end: 2020
  7. CLOPIXOL 200 MG/ML SOLUTION FOR INJECTION [Suspect]
     Active Substance: ZUCLOPENTHIXOL DECANOATE
     Dates: start: 20200617, end: 202007
  8. RAMIPRIL (G) [Concomitant]
     Active Substance: RAMIPRIL
     Indication: HYPERTENSION

REACTIONS (8)
  - Breast discharge [Not Recovered/Not Resolved]
  - Headache [Unknown]
  - Injection site pain [Not Recovered/Not Resolved]
  - Fatigue [Not Recovered/Not Resolved]
  - Hypothalamo-pituitary disorder [Not Recovered/Not Resolved]
  - Nervous system disorder [Unknown]
  - Galactorrhoea [Unknown]
  - Somnolence [Not Recovered/Not Resolved]
